FAERS Safety Report 4894718-4 (Version None)
Quarter: 2006Q1

REPORT INFORMATION
  Report Type: 
  Country: None (occurrence: None)
  Receive Date: 20060127
  Receipt Date: 20060127
  Transmission Date: 20060701
  Serious: Yes (Death, Hospitalization)
  Sender: FDA-Public Use
  Company Number: None

PATIENT
  Age: 54 Year
  Sex: Female

DRUGS (14)
  1. DOPAMINE [Suspect]
     Indication: PULMONARY HYPERTENSION
     Dosage: 3 MCG/KG/MIN-X 2 CADD CASSETT IV
     Route: 042
     Dates: start: 20060103, end: 20060105
  2. CIPROFLOXACIN [Concomitant]
  3. FAMOTIDINE [Concomitant]
  4. EPOSPROSTENOL [Concomitant]
  5. FENTANYL [Concomitant]
  6. ALPROAZOLAM [Concomitant]
  7. FUROSEMIDE [Concomitant]
  8. PREDNISONE [Concomitant]
  9. SILDENAFIL [Concomitant]
  10. SPIRONOLACTONE [Concomitant]
  11. TAMOXIFEN CITRATE [Concomitant]
  12. ZINC SULFATE [Concomitant]
  13. GABAPENTIN [Concomitant]
  14. ACETAMINOPHEN [Concomitant]

REACTIONS (5)
  - ACCIDENTAL EXPOSURE [None]
  - INCORRECT DOSE ADMINISTERED [None]
  - PULSE ABSENT [None]
  - RESPIRATORY ARREST [None]
  - WRONG DRUG ADMINISTERED [None]
